FAERS Safety Report 11058854 (Version 1)
Quarter: 2015Q2

REPORT INFORMATION
  Report Type: Spontaneous
  Country: US (occurrence: None)
  Receive Date: 20150422
  Receipt Date: 20150422
  Transmission Date: 20150821
  Serious: Yes (Other)
  Sender: FDA-Public Use
  Company Number: None

PATIENT
  Age: 68 Year
  Sex: Male
  Weight: 65.77 kg

DRUGS (2)
  1. LEVOFLOXACIN 500 MG ZYDUS PHARMACEUTICALS [Suspect]
     Active Substance: LEVOFLOXACIN
     Indication: INFECTION PROPHYLAXIS
     Dosage: 1 PILL
     Route: 048
     Dates: start: 20150419, end: 20150421
  2. ACETAMINOPHEN. [Concomitant]
     Active Substance: ACETAMINOPHEN

REACTIONS (1)
  - Amnesia [None]

NARRATIVE: CASE EVENT DATE: 20150421
